FAERS Safety Report 23461045 (Version 4)
Quarter: 2025Q1

REPORT INFORMATION
  Report Type: Spontaneous
  Country: CA (occurrence: CA)
  Receive Date: 20240131
  Receipt Date: 20250108
  Transmission Date: 20250408
  Serious: Yes (Other)
  Sender: PFIZER
  Company Number: CA-PFIZER INC-202300377351

PATIENT
  Age: 67 Year
  Sex: Female
  Weight: 87 kg

DRUGS (36)
  1. RUXIENCE [Suspect]
     Active Substance: RITUXIMAB-PVVR
     Indication: Granulomatosis with polyangiitis
     Route: 042
     Dates: start: 202305
  2. RUXIENCE [Suspect]
     Active Substance: RITUXIMAB-PVVR
     Indication: Anti-neutrophil cytoplasmic antibody positive vasculitis
     Route: 042
     Dates: start: 20231214
  3. RUXIENCE [Suspect]
     Active Substance: RITUXIMAB-PVVR
     Route: 042
     Dates: start: 20231227
  4. RUXIENCE [Suspect]
     Active Substance: RITUXIMAB-PVVR
     Route: 042
     Dates: start: 20240626
  5. RUXIENCE [Suspect]
     Active Substance: RITUXIMAB-PVVR
     Route: 042
     Dates: start: 20240711
  6. ACETAMINOPHEN [Concomitant]
     Active Substance: ACETAMINOPHEN
     Indication: Premedication
     Dates: start: 20231227, end: 20231227
  7. ACETAMINOPHEN [Concomitant]
     Active Substance: ACETAMINOPHEN
     Dates: start: 20240626, end: 20240626
  8. ACETAMINOPHEN [Concomitant]
     Active Substance: ACETAMINOPHEN
     Dates: start: 20240711, end: 20240711
  9. APO FAMOTIDINE [Concomitant]
     Dates: start: 20231227, end: 20231227
  10. ATORVASTATIN CALCIUM [Concomitant]
     Active Substance: ATORVASTATIN CALCIUM
     Dosage: 1 DF (20 MG), DAILY AT BEDTIME
     Route: 048
  11. APO-TRYPTOPHAN [Concomitant]
     Dosage: 6 DF (3 G), DAILY AT BEDTIME
  12. CALCIUM CARBONATE\ERGOCALCIFEROL [Concomitant]
     Active Substance: CALCIUM CARBONATE\ERGOCALCIFEROL
     Dosage: 1 DF, 2X/DAY
  13. CETIRIZINE [Concomitant]
     Active Substance: CETIRIZINE HYDROCHLORIDE
     Indication: Premedication
     Dates: start: 20240711
  14. DEXILANT [Concomitant]
     Active Substance: DEXLANSOPRAZOLE
     Dosage: 1 DF, DAILY WITH BREAKFAST
  15. JAMP NYSTATIN [Concomitant]
  16. SENNOSIDES A AND B [Concomitant]
     Active Substance: SENNOSIDES A AND B
     Dosage: 2 DF, DAILY AT BEDTIME
  17. POLYETHYLENE GLYCOL 3350 [Concomitant]
     Active Substance: POLYETHYLENE GLYCOL 3350
     Dosage: 1 DF (DISSOLVE 17 G WITH A LIQUID ONCE DAILY)
     Route: 048
  18. LORATADINE [Concomitant]
     Active Substance: LORATADINE
     Indication: Premedication
  19. LORATADINE [Concomitant]
     Active Substance: LORATADINE
     Dates: start: 20231227, end: 20231227
  20. LORATADINE [Concomitant]
     Active Substance: LORATADINE
     Dates: start: 20240626, end: 20240626
  21. METHYLPREDNISOLONE [Concomitant]
     Active Substance: METHYLPREDNISOLONE
     Indication: Premedication
     Dates: start: 20231227, end: 20231227
  22. METHYLPREDNISOLONE [Concomitant]
     Active Substance: METHYLPREDNISOLONE
     Dates: start: 20240711, end: 20240711
  23. NOVO GESIC [Concomitant]
     Indication: Pain
     Route: 048
  24. NOVO GESIC [Concomitant]
     Indication: Pyrexia
  25. PREDNISONE [Concomitant]
     Active Substance: PREDNISONE
     Route: 048
  26. PREDNISONE [Concomitant]
     Active Substance: PREDNISONE
     Route: 048
  27. PREDNISONE [Concomitant]
     Active Substance: PREDNISONE
     Route: 048
  28. RIVA ALENDRONATE [Concomitant]
     Dosage: 1 DF, WEEKLY 30 MINUTES BEFORE BREAKFAST
  29. AMLODIPINE BESYLATE [Concomitant]
     Active Substance: AMLODIPINE BESYLATE
     Dosage: 1 DF, DAILY AT BEDTIME
  30. VALSARTAN [Concomitant]
     Active Substance: VALSARTAN
     Dosage: 1 DF, DAILY
  31. SOLU-MEDROL [Concomitant]
     Active Substance: METHYLPREDNISOLONE SODIUM SUCCINATE
     Indication: Premedication
     Dates: start: 20240626, end: 20240626
  32. SANDOZ REPAGLINIDE [Concomitant]
     Dosage: 1 DF, 2X/DAY
  33. SITAGLIPTIN [Concomitant]
     Active Substance: SITAGLIPTIN
     Dosage: 1 DF, DAILY WITH BREAKFAST
  34. SULFATRIM [Concomitant]
     Active Substance: SULFAMETHOXAZOLE\TRIMETHOPRIM
     Dosage: 1 DF, DAILY 3 TIMES A WEEK (MON-WED-FRI)
  35. SYNTHROID [Concomitant]
     Active Substance: LEVOTHYROXINE SODIUM
     Dosage: 1 DF, DAILY WITH BREAKFAST
  36. SYMBICORT [Concomitant]
     Active Substance: BUDESONIDE\FORMOTEROL FUMARATE DIHYDRATE
     Indication: Asthma
     Dosage: INHALATION ORALLY, (MORNING + NIGHT REGULARLY)

REACTIONS (15)
  - Immunosuppression [Unknown]
  - Viral infection [Recovered/Resolved]
  - Blood pressure fluctuation [Recovered/Resolved]
  - Asthenia [Unknown]
  - Hypertension [Not Recovered/Not Resolved]
  - Gait disturbance [Unknown]
  - Weight increased [Unknown]
  - Hyperhidrosis [Recovered/Resolved]
  - Headache [Not Recovered/Not Resolved]
  - Feeling of body temperature change [Recovered/Resolved]
  - Diarrhoea [Recovered/Resolved]
  - Herpes zoster [Recovered/Resolved]
  - Therapeutic response shortened [Unknown]
  - Off label use [Unknown]
  - Incorrect product administration duration [Unknown]

NARRATIVE: CASE EVENT DATE: 20230501
